FAERS Safety Report 9671676 (Version 2)
Quarter: 2013Q4

REPORT INFORMATION
  Report Type: Spontaneous
  Country: US (occurrence: US)
  Receive Date: 20131106
  Receipt Date: 20131118
  Transmission Date: 20140711
  Serious: No
  Sender: FDA-Public Use
  Company Number: US-PFIZER INC-2013315894

PATIENT
  Age: 73 Year
  Sex: Male
  Weight: 98.41 kg

DRUGS (6)
  1. DOXAZOSIN MESILATE [Suspect]
     Indication: HYPERTENSION
     Dosage: UNK
  2. LUTEIN [Concomitant]
     Indication: MACULAR DEGENERATION
     Dosage: UNK
  3. PRESERVISION ARED [Concomitant]
     Indication: MACULAR DEGENERATION
     Dosage: UNK
  4. VITAMIN D [Concomitant]
     Dosage: UNK
  5. OMEGA 3 [Concomitant]
     Dosage: UNK
  6. CALCIUM [Concomitant]
     Dosage: UNK

REACTIONS (2)
  - Blood pressure inadequately controlled [Unknown]
  - Fatigue [Unknown]
